FAERS Safety Report 12755098 (Version 3)
Quarter: 2016Q3

REPORT INFORMATION
  Report Type: Report from Study
  Country: IL (occurrence: IL)
  Receive Date: 20160916
  Receipt Date: 20160930
  Transmission Date: 20161109
  Serious: Yes (Hospitalization, Other)
  Sender: FDA-Public Use
  Company Number: PHHY2016IL126056

PATIENT
  Age: 68 Year
  Sex: Female

DRUGS (1)
  1. AFINITOR [Suspect]
     Active Substance: EVEROLIMUS
     Indication: BREAST CANCER
     Dosage: 10 MG, QD
     Route: 048
     Dates: start: 20150906, end: 20160911

REACTIONS (7)
  - Blood magnesium decreased [Unknown]
  - Haemoglobin decreased [Unknown]
  - Malignant neoplasm progression [Not Recovered/Not Resolved]
  - Carotid artery occlusion [Unknown]
  - Blood potassium decreased [Unknown]
  - Asthenia [Not Recovered/Not Resolved]
  - Carcinoembryonic antigen increased [Not Recovered/Not Resolved]

NARRATIVE: CASE EVENT DATE: 20160911
